FAERS Safety Report 6976967-4 (Version None)
Quarter: 2010Q3

REPORT INFORMATION
  Report Type: 
  Country: None (occurrence: None)
  Receive Date: 20100910
  Receipt Date: 20100903
  Transmission Date: 20110219
  Serious: Yes (Death)
  Sender: FDA-Public Use
  Company Number: US-ROCHE-714641

PATIENT
  Sex: Female
  Weight: 79.4 kg

DRUGS (6)
  1. BONIVA [Suspect]
     Indication: OSTEOPOROSIS
     Route: 048
     Dates: start: 20100501, end: 20100622
  2. ZANTIC [Concomitant]
     Indication: DYSPEPSIA
     Route: 048
  3. LEVOTHYROXINE SODIUM [Concomitant]
     Indication: HYPOTHYROIDISM
     Route: 048
  4. FUROSEMIDE [Concomitant]
     Dosage: QAM, OTHER INDICATION CAR PULMONALE
     Route: 048
  5. SPIRONOLACTONE [Concomitant]
     Dosage: QAM
     Route: 048
  6. PREDNISONE [Concomitant]
     Indication: SARCOIDOSIS
     Dosage: QAM
     Route: 048

REACTIONS (5)
  - CARDIAC ARREST [None]
  - GENERAL PHYSICAL HEALTH DETERIORATION [None]
  - NAUSEA [None]
  - PALPITATIONS [None]
  - SYNCOPE [None]
